FAERS Safety Report 5914695-4 (Version None)
Quarter: 2008Q4

REPORT INFORMATION
  Report Type: 
  Country: None (occurrence: None)
  Receive Date: 20081010
  Receipt Date: 20080930
  Transmission Date: 20090506
  Serious: Yes (Hospitalization)
  Sender: FDA-Public Use
  Company Number: US-JNJFOC-20081000642

PATIENT
  Sex: Female
  Weight: 72.58 kg

DRUGS (2)
  1. DURAGESIC-100 [Suspect]
     Route: 062
  2. DURAGESIC-100 [Suspect]
     Indication: BACK PAIN
     Route: 062

REACTIONS (7)
  - BODY HEIGHT DECREASED [None]
  - DRUG EFFECT DECREASED [None]
  - FALL [None]
  - ILL-DEFINED DISORDER [None]
  - JOINT INJURY [None]
  - LEG AMPUTATION [None]
  - LOCALISED INFECTION [None]
